FAERS Safety Report 7993932-9 (Version None)
Quarter: 2011Q4

REPORT INFORMATION
  Report Type: 
  Country: None (occurrence: None)
  Receive Date: 20111215
  Receipt Date: 20111205
  Transmission Date: 20120403
  Serious: Yes (Hospitalization)
  Sender: FDA-Public Use
  Company Number: 1129415

PATIENT
  Age: 33 Year
  Sex: Male

DRUGS (1)
  1. PHENYTOIN [Suspect]
     Indication: PRODUCT USED FOR UNKNOWN INDICATION

REACTIONS (7)
  - ALANINE AMINOTRANSFERASE INCREASED [None]
  - CYTOMEGALOVIRUS GASTRITIS [None]
  - HUMAN HERPESVIRUS 6 INFECTION [None]
  - GASTRIC ULCER [None]
  - DRUG RASH WITH EOSINOPHILIA AND SYSTEMIC SYMPTOMS [None]
  - ABDOMINAL PAIN UPPER [None]
  - GAMMA-GLUTAMYLTRANSFERASE INCREASED [None]
